FAERS Safety Report 11688295 (Version 3)
Quarter: 2015Q4

REPORT INFORMATION
  Report Type: Spontaneous
  Country: US (occurrence: US)
  Receive Date: 20151030
  Receipt Date: 20151218
  Transmission Date: 20160304
  Serious: Yes (Disabling, Other)
  Sender: FDA-Public Use
  Company Number: US-ASTRAZENECA-2015SF03948

PATIENT
  Sex: Female

DRUGS (3)
  1. NEXIUM [Interacting]
     Active Substance: ESOMEPRAZOLE MAGNESIUM
     Route: 048
  2. NEXIUM [Suspect]
     Active Substance: ESOMEPRAZOLE MAGNESIUM
     Route: 048
  3. METHOTREXATE [Interacting]
     Active Substance: METHOTREXATE
     Route: 065

REACTIONS (5)
  - Gastrooesophageal reflux disease [Unknown]
  - Drug interaction [Unknown]
  - Injury [Unknown]
  - Spinal fracture [Unknown]
  - Toxicity to various agents [Unknown]
